FAERS Safety Report 7608312-5 (Version None)
Quarter: 2011Q3

REPORT INFORMATION
  Report Type: 
  Country: None (occurrence: None)
  Receive Date: 20110712
  Receipt Date: 20100909
  Transmission Date: 20111222
  Serious: Yes (Other)
  Sender: FDA-Public Use
  Company Number: 2010090004

PATIENT
  Age: 36 Year
  Sex: Female

DRUGS (2)
  1. OXYCODONE HCL [Suspect]
     Indication: BACK PAIN
  2. SOMA [Suspect]
     Indication: BACK PAIN
     Dosage: ORAL
     Route: 048
     Dates: end: 20100816

REACTIONS (1)
  - DRUG ABUSE [None]
